FAERS Safety Report 17388276 (Version 1)
Quarter: 2020Q1

REPORT INFORMATION
  Report Type: Report from Study
  Country: IT (occurrence: IT)
  Receive Date: 20200207
  Receipt Date: 20200207
  Transmission Date: 20200409
  Serious: Yes (Other)
  Sender: FDA-Public Use
  Company Number: IT-PFIZER INC-2020047582

PATIENT
  Age: 30 Year
  Sex: Male

DRUGS (3)
  1. VERTISERC [Suspect]
     Active Substance: BETAHISTINE HYDROCHLORIDE
     Dosage: UNK
     Dates: start: 20190508, end: 20190508
  2. MEDROL [Suspect]
     Active Substance: METHYLPREDNISOLONE
     Dosage: 40 MG, SINGLE
     Route: 048
     Dates: start: 20190508, end: 20190508
  3. BACTRIM [Suspect]
     Active Substance: SULFAMETHOXAZOLE\TRIMETHOPRIM
     Dosage: 16 DF, SINGLE
     Route: 048
     Dates: start: 20190508, end: 20190508

REACTIONS (5)
  - Dizziness [Recovered/Resolved]
  - Agitation [Recovered/Resolved]
  - Tremor [Recovered/Resolved]
  - Intentional overdose [Recovered/Resolved]
  - Abdominal pain upper [Recovered/Resolved]

NARRATIVE: CASE EVENT DATE: 20190508
